FAERS Safety Report 15460118 (Version 1)
Quarter: 2018Q4

REPORT INFORMATION
  Report Type: Spontaneous
  Country: US (occurrence: US)
  Receive Date: 20181003
  Receipt Date: 20181003
  Transmission Date: 20190204
  Serious: No
  Sender: FDA-Public Use
  Company Number: US-SA-2018SA272808

PATIENT
  Age: 61 Year
  Sex: Female

DRUGS (1)
  1. PRALUENT [Suspect]
     Active Substance: ALIROCUMAB
     Indication: TYPE V HYPERLIPIDAEMIA
     Dosage: UNK
     Route: 058
     Dates: start: 20180803, end: 20180906

REACTIONS (8)
  - Diarrhoea [Unknown]
  - Colitis [Unknown]
  - Muscle fatigue [Unknown]
  - Fatigue [Unknown]
  - Amnesia [Unknown]
  - Rhinorrhoea [Unknown]
  - Productive cough [Unknown]
  - Malaise [Unknown]

NARRATIVE: CASE EVENT DATE: 2018
